FAERS Safety Report 15834800 (Version 1)
Quarter: 2019Q1

REPORT INFORMATION
  Report Type: Spontaneous
  Country: US (occurrence: US)
  Receive Date: 20190116
  Receipt Date: 20190116
  Transmission Date: 20190417
  Serious: No
  Sender: FDA-Public Use
  Company Number: US-PFIZER INC-2019018104

PATIENT
  Age: 76 Year
  Sex: Female

DRUGS (1)
  1. GENOTROPIN [Suspect]
     Active Substance: SOMATROPIN
     Dosage: 0.3 MG, DAILY

REACTIONS (6)
  - Paraesthesia [Unknown]
  - Malaise [Unknown]
  - Depression [Unknown]
  - Burning sensation [Unknown]
  - Hypoaesthesia [Unknown]
  - Heart rate decreased [Unknown]
